FAERS Safety Report 8588933-6 (Version None)
Quarter: 2012Q3

REPORT INFORMATION
  Report Type: 
  Country: None (occurrence: None)
  Receive Date: 20120813
  Receipt Date: 20120806
  Transmission Date: 20120928
  Serious: Yes (Hospitalization, Other)
  Sender: FDA-Public Use
  Company Number: US-009507513-1104USA01379

PATIENT

DRUGS (13)
  1. VITAMIN D [Concomitant]
  2. PREMARIN [Concomitant]
     Dates: end: 20110501
  3. OMEGA-3-ACID ETHYL ESTERS [Concomitant]
     Dates: start: 19960101
  4. NIACIN [Concomitant]
     Dates: start: 19910101
  5. FOSAMAX [Suspect]
     Indication: OSTEOPOROSIS PROPHYLAXIS
     Dosage: 10 MG, QD
     Route: 048
     Dates: start: 19990816, end: 20090921
  6. ROFECOXIB [Concomitant]
     Indication: OSTEOARTHRITIS
     Route: 048
  7. FOSAMAX [Suspect]
     Indication: OSTEOPENIA
     Dosage: 70 MG, QW
     Route: 048
     Dates: start: 20021126, end: 20090211
  8. CALCIUM (UNSPECIFIED) [Concomitant]
  9. NIACIN [Concomitant]
     Dates: start: 19910101
  10. FORTEO [Suspect]
     Indication: OSTEOPOROSIS
     Dosage: 20 ?G, QD
     Dates: start: 20101001
  11. MK-9278 [Concomitant]
  12. FOSAMAX [Suspect]
     Dosage: 70 MG, UNK
     Dates: start: 20090105, end: 20100623
  13. ROFECOXIB [Concomitant]

REACTIONS (42)
  - RADIUS FRACTURE [None]
  - SPINAL DISORDER [None]
  - LOOSE TOOTH [None]
  - EYE ALLERGY [None]
  - INTERVERTEBRAL DISC DEGENERATION [None]
  - RENAL FAILURE [None]
  - SEBORRHOEIC KERATOSIS [None]
  - PUNCTATE KERATOSIS [None]
  - BREAST CANCER [None]
  - ANKLE FRACTURE [None]
  - LIPOMA [None]
  - ANAEMIA [None]
  - TONSILLAR DISORDER [None]
  - LOW TURNOVER OSTEOPATHY [None]
  - MUSCLE SPASMS [None]
  - COLON ADENOMA [None]
  - FALL [None]
  - FEMUR FRACTURE [None]
  - ACNE [None]
  - NECK PAIN [None]
  - URETHRAL DILATATION [None]
  - HAEMATURIA [None]
  - CYST RUPTURE [None]
  - APHTHOUS STOMATITIS [None]
  - FATIGUE [None]
  - SPINAL COMPRESSION FRACTURE [None]
  - ACUTE SINUSITIS [None]
  - BONE CYST [None]
  - BRONCHITIS [None]
  - GALLBLADDER DISORDER [None]
  - GINGIVAL DISORDER [None]
  - ASTHMA [None]
  - SEASONAL ALLERGY [None]
  - BACK PAIN [None]
  - VARICELLA [None]
  - ARTHROPOD BITE [None]
  - PERIORBITAL CELLULITIS [None]
  - DERMATITIS CONTACT [None]
  - HYPERLIPIDAEMIA [None]
  - BODY HEIGHT DECREASED [None]
  - LIP NEOPLASM [None]
  - OSTEOARTHRITIS [None]
